FAERS Safety Report 6372913-5 (Version None)
Quarter: 2009Q3

REPORT INFORMATION
  Report Type: 
  Country: None (occurrence: None)
  Receive Date: 20090924
  Receipt Date: 20090417
  Transmission Date: 20100115
  Serious: Yes (Hospitalization)
  Sender: FDA-Public Use
  Company Number: US-ASTRAZENECA-2008UW26504

PATIENT
  Age: 658 Month
  Sex: Male
  Weight: 72.6 kg

DRUGS (6)
  1. SEROQUEL [Suspect]
     Route: 048
     Dates: start: 20060707
  2. ZYPREXA [Concomitant]
     Dosage: 7.5 MG TO 15 MG
     Dates: start: 20060901, end: 20080101
  3. CLONAZEPAM [Concomitant]
     Dates: start: 20070401, end: 20080101
  4. TRAZODONE [Concomitant]
     Dates: start: 20061001, end: 20080101
  5. MIRTAZAPINE [Concomitant]
     Dates: start: 20070201, end: 20080401
  6. AMITRIPTYLINE HCL [Concomitant]
     Dates: start: 20060101

REACTIONS (7)
  - ALANINE AMINOTRANSFERASE INCREASED [None]
  - CHANGE OF BOWEL HABIT [None]
  - CHEST PAIN [None]
  - HAND FRACTURE [None]
  - PANCREATITIS [None]
  - RHINITIS [None]
  - UPPER RESPIRATORY TRACT INFECTION [None]
